FAERS Safety Report 8380376-3 (Version None)
Quarter: 2012Q2

REPORT INFORMATION
  Report Type: 
  Country: None (occurrence: None)
  Receive Date: 20120523
  Receipt Date: 20120510
  Transmission Date: 20120825
  Serious: No
  Sender: FDA-Public Use
  Company Number: US-ASTRAZENECA-2012SE30247

PATIENT
  Age: 43 Year
  Sex: Female
  Weight: 51.3 kg

DRUGS (2)
  1. TOPROL-XL [Suspect]
     Indication: TACHYCARDIA
     Route: 048
     Dates: start: 20020101, end: 20120507
  2. TOPROL-XL [Suspect]
     Indication: HYPERTENSION
     Route: 048
     Dates: start: 20020101, end: 20120507

REACTIONS (3)
  - DIZZINESS [None]
  - WEIGHT DECREASED [None]
  - ADVERSE EVENT [None]
